FAERS Safety Report 5592686-3 (Version None)
Quarter: 2007Q4

REPORT INFORMATION
  Report Type: 
  Country: None (occurrence: None)
  Receive Date: 20071218
  Receipt Date: 20070712
  Transmission Date: 20080405
  Serious: Yes (Hospitalization, Other)
  Sender: FDA-Public Use
  Company Number: 2006108796

PATIENT
  Age: 38 Year
  Sex: Male
  Weight: 117.9 kg

DRUGS (2)
  1. BEXTRA [Suspect]
     Indication: PAIN
     Dosage: 10 MG (10 MG, 1 IN 1 D)
     Dates: start: 20020501
  2. VIOXX [Suspect]
     Indication: PAIN
     Dosage: 25 MG (25 MG U IN U D) ORAL
     Route: 048
     Dates: start: 20010216

REACTIONS (1)
  - MYOCARDIAL INFARCTION [None]
